FAERS Safety Report 6047887-7 (Version None)
Quarter: 2009Q1

REPORT INFORMATION
  Report Type: 
  Country: None (occurrence: None)
  Receive Date: 20090123
  Receipt Date: 20090116
  Transmission Date: 20090719
  Serious: Yes (Hospitalization, Other)
  Sender: FDA-Public Use
  Company Number: US-ELI_LILLY_AND_COMPANY-US200901002862

PATIENT
  Age: 55 Year
  Sex: Male

DRUGS (1)
  1. ALIMTA [Suspect]
     Indication: PANCREATIC CARCINOMA METASTATIC
     Dosage: 840 MG, OTHER
     Route: 042
     Dates: start: 20081222

REACTIONS (7)
  - ABDOMINAL DISTENSION [None]
  - ATELECTASIS [None]
  - BLOOD ALKALINE PHOSPHATASE INCREASED [None]
  - BLOOD UREA ABNORMAL [None]
  - DYSPNOEA [None]
  - HYPERGLYCAEMIA [None]
  - OEDEMA PERIPHERAL [None]
